FAERS Safety Report 8116089-2 (Version None)
Quarter: 2011Q4

REPORT INFORMATION
  Report Type: 
  Country: None (occurrence: None)
  Receive Date: 20111227
  Receipt Date: 20110926
  Transmission Date: 20120403
  Serious: Yes (Other)
  Sender: FDA-Public Use
  Company Number: PHHY2011US56278

PATIENT
  Age: 31 Year
  Sex: Female

DRUGS (4)
  1. MELATONIN (MELATONIN) [Concomitant]
  2. FAMPRIDINE (FAMPRIDINE) [Concomitant]
  3. GILENYA [Suspect]
     Indication: MULTIPLE SCLEROSIS RELAPSE
     Dosage: 0.5 MG, QD, ORAL
     Route: 048
     Dates: start: 20110502, end: 20110630
  4. VESICARE [Concomitant]

REACTIONS (1)
  - LEUKOPENIA [None]
